FAERS Safety Report 5113357-3 (Version None)
Quarter: 2006Q3

REPORT INFORMATION
  Report Type: 
  Country: None (occurrence: None)
  Receive Date: 20060920
  Receipt Date: 20060907
  Transmission Date: 20061208
  Serious: Yes (Death, Hospitalization, Other)
  Sender: FDA-Public Use
  Company Number: 2006US000821

PATIENT
  Age: 61 Year
  Sex: Male

DRUGS (10)
  1. PROGRAF [Suspect]
     Indication: PROPHYLAXIS AGAINST TRANSPLANT REJECTION
     Dosage: 2 MG, BID, ORAL
     Route: 048
     Dates: start: 20041202
  2. MYCOPHENOLATE MOFETIL [Suspect]
     Indication: PROPHYLAXIS AGAINST TRANSPLANT REJECTION
     Dosage: 500 MG, BID, ORAL; SEE IMAGE
     Route: 048
     Dates: start: 20041201, end: 20060124
  3. PREDNISONE TAB [Suspect]
     Indication: PROPHYLAXIS AGAINST TRANSPLANT REJECTION
     Dosage: 10 MG, UID/QD, ORAL; SEE IMAGE
     Route: 048
     Dates: start: 20041203, end: 20060124
  4. HYDROCHLOROTHIAZDE TAB [Concomitant]
  5. ASPIRIN [Concomitant]
  6. CENTRUM (BIOTIN, ASCORBIC ACID) [Concomitant]
  7. NIFEDIPINE [Concomitant]
  8. SIMVASTATIN [Concomitant]
  9. ZANTAC [Concomitant]
  10. INFLUENZA VIRUS VACCINE (INFLUENZA VIRUS VACCINE POLYVALENT) [Concomitant]

REACTIONS (3)
  - LUNG SQUAMOUS CELL CARCINOMA STAGE UNSPECIFIED [None]
  - METASTASES TO ADRENALS [None]
  - RADIATION OESOPHAGITIS [None]
